FAERS Safety Report 4844636-2 (Version None)
Quarter: 2005Q4

REPORT INFORMATION
  Report Type: 
  Country: None (occurrence: None)
  Receive Date: 20051129
  Receipt Date: 20051116
  Transmission Date: 20060501
  Serious: Yes (Other)
  Sender: FDA-Public Use
  Company Number: JP_051007917

PATIENT
  Age: 52 Year
  Sex: Male
  Weight: 75 kg

DRUGS (4)
  1. ZYPREXA ZYDIS [Suspect]
     Indication: SCHIZOPHRENIA
     Dosage: 10 MG, 2/D, ORAL
     Route: 048
     Dates: start: 20050924, end: 20050924
  2. HALOPERIDOL [Concomitant]
  3. AKINETON /00079502/ (BIPERIDEN HYDROCHLORIDE) [Concomitant]
  4. ROHYPNOL (FLUNITRAZEPAM) [Concomitant]

REACTIONS (8)
  - APNOEA [None]
  - BLOOD POTASSIUM INCREASED [None]
  - COMA [None]
  - CYANOSIS [None]
  - FALL [None]
  - HAEMOPNEUMOTHORAX [None]
  - HYPERGLYCAEMIA [None]
  - RESPIRATORY FAILURE [None]
